FAERS Safety Report 10585410 (Version 1)
Quarter: 2014Q4

REPORT INFORMATION
  Report Type: Spontaneous
  Country: US (occurrence: US)
  Receive Date: 20141114
  Receipt Date: 20141114
  Transmission Date: 20150529
  Serious: Yes (Death)
  Sender: FDA-Public Use
  Company Number: US-INCYTE CORPORATION-2014IN003436

PATIENT
  Age: 78 Year
  Sex: Female

DRUGS (7)
  1. OMEPRAZOLE. [Concomitant]
     Active Substance: OMEPRAZOLE
  2. JAKAFI [Suspect]
     Active Substance: RUXOLITINIB
     Dosage: 25 MG, BID
     Route: 048
     Dates: start: 20131102
  3. ALLOPURINOL. [Concomitant]
     Active Substance: ALLOPURINOL
  4. FENTANYL. [Concomitant]
     Active Substance: FENTANYL
  5. FUROSEMIDE. [Concomitant]
     Active Substance: FUROSEMIDE
  6. DIAZEPAM. [Concomitant]
     Active Substance: DIAZEPAM
  7. OXYCODONE [Concomitant]
     Active Substance: OXYCODONE

REACTIONS (1)
  - Death [Fatal]

NARRATIVE: CASE EVENT DATE: 20141111
